FAERS Safety Report 9852833 (Version 1)
Quarter: 2014Q1

REPORT INFORMATION
  Report Type: Spontaneous
  Country: US (occurrence: None)
  Receive Date: 20140127
  Receipt Date: 20140127
  Transmission Date: 20141002
  Serious: Yes (Death, Other)
  Sender: FDA-Public Use
  Company Number: 2014US00072

PATIENT
  Sex: 0

DRUGS (3)
  1. GEMCITABINE (GEMCITABINE) INJECTION [Suspect]
     Indication: BLADDER CANCER
     Dosage: 800 MG/M2, OVER 30 MINUTES ON DAYS 1 AND 8
  2. CARBOPLATIN (CARBOPLATIN) INJECTION [Suspect]
     Indication: BLADDER CANCER
     Dosage: AREA UNDER THE CURVE OVER 15 MINUTES ADMINISTERED ON DAY 1
  3. NAB-PACLITAXEL [Suspect]
     Indication: BLADDER CANCER
     Dosage: THE DOSE ADJUSTED TO EVERY 3 WEEKS AT THE DOSE OF 260 MG/M2 OVER 30 MINUTES

REACTIONS (4)
  - Haemorrhage intracranial [None]
  - Respiratory failure [None]
  - Thrombocytopenia [None]
  - Febrile neutropenia [None]
